FAERS Safety Report 23372207 (Version 1)
Quarter: 2024Q1

REPORT INFORMATION
  Report Type: Spontaneous
  Country: CN (occurrence: CN)
  Receive Date: 20240105
  Receipt Date: 20240105
  Transmission Date: 20240410
  Serious: Yes (Other)
  Sender: FDA-Public Use
  Company Number: CN-009507513-2401CHN000937

PATIENT
  Age: 96 Year
  Sex: Male
  Weight: 45 kg

DRUGS (3)
  1. NOXAFIL [Suspect]
     Active Substance: POSACONAZOLE
     Indication: Mucormycosis
     Dosage: 10 MILLILITER, BID
     Route: 048
     Dates: start: 20231208, end: 20231211
  2. NOXAFIL [Suspect]
     Active Substance: POSACONAZOLE
     Dosage: 5 MILLILITER, TID (DOSE REDUCED)
     Route: 048
     Dates: start: 20231211, end: 20231213
  3. NOXAFIL [Suspect]
     Active Substance: POSACONAZOLE
     Dosage: 5 MILLILITER, BID (DOSE REDUCED)
     Route: 048
     Dates: start: 20231213, end: 20231215

REACTIONS (3)
  - Blood creatine phosphokinase increased [Recovering/Resolving]
  - Myoglobin blood increased [Unknown]
  - Product use in unapproved indication [Unknown]

NARRATIVE: CASE EVENT DATE: 20231208
